FAERS Safety Report 16357528 (Version 1)
Quarter: 2019Q2

REPORT INFORMATION
  Report Type: Spontaneous
  Country: IT (occurrence: IT)
  Receive Date: 20190527
  Receipt Date: 20190527
  Transmission Date: 20190711
  Serious: Yes (Hospitalization)
  Sender: FDA-Public Use
  Company Number: IT-TEVA-2019-IT-1054387

PATIENT
  Age: 74 Year
  Sex: Female

DRUGS (9)
  1. LANOXIN [Suspect]
     Active Substance: DIGOXIN
     Indication: PRODUCT USED FOR UNKNOWN INDICATION
     Dosage: 125 MICROGRAM DAILY;
     Dates: start: 20180101, end: 20181003
  2. SELOKEN [Concomitant]
     Active Substance: METOPROLOL
     Dosage: 10 MILLIGRAM
  3. TORVAST [Concomitant]
     Active Substance: ATORVASTATIN
  4. CITALOPRAM [Suspect]
     Active Substance: CITALOPRAM HYDROBROMIDE
     Indication: PRODUCT USED FOR UNKNOWN INDICATION
     Dosage: 40 MILLIGRAM DAILY;
     Dates: start: 20180101, end: 20181003
  5. NORVASC [Concomitant]
     Active Substance: AMLODIPINE BESYLATE
  6. ELIQUIS [Concomitant]
     Active Substance: APIXABAN
  7. TRIATEC [Concomitant]
     Dosage: 5 MILLIGRAM
  8. XIGDUO XR [Concomitant]
     Active Substance: DAPAGLIFLOZIN PROPANEDIOL\METFORMIN HYDROCHLORIDE
  9. PEPTAZOL [Concomitant]

REACTIONS (1)
  - Atrial tachycardia [Unknown]

NARRATIVE: CASE EVENT DATE: 20181003
